FAERS Safety Report 11983448 (Version 1)
Quarter: 2016Q1

REPORT INFORMATION
  Report Type: Report from Study
  Country: CA (occurrence: CA)
  Receive Date: 20160201
  Receipt Date: 20160201
  Transmission Date: 20160526
  Serious: Yes (Death)
  Sender: FDA-Public Use
  Company Number: CA-AMGEN-CANSL2016009904

PATIENT
  Age: 72 Year
  Sex: Male

DRUGS (1)
  1. XGEVA [Suspect]
     Active Substance: DENOSUMAB
     Indication: PROSTATIC DISORDER
     Dosage: 120 MG/1.70 ML, UNK
     Route: 065
     Dates: start: 20150326

REACTIONS (1)
  - Death [Fatal]

NARRATIVE: CASE EVENT DATE: 20160110
